FAERS Safety Report 9792718 (Version 1)
Quarter: 2014Q1

REPORT INFORMATION
  Report Type: Spontaneous
  Country: US (occurrence: US)
  Receive Date: 20140102
  Receipt Date: 20140102
  Transmission Date: 20141002
  Serious: No
  Sender: FDA-Public Use
  Company Number: US-SANOFI-AVENTIS-2013SA023681

PATIENT
  Age: 32 Year
  Sex: Female

DRUGS (3)
  1. AUBAGIO [Suspect]
     Indication: MULTIPLE SCLEROSIS
     Route: 048
     Dates: start: 20130119, end: 20130205
  2. AUBAGIO [Suspect]
     Indication: MULTIPLE SCLEROSIS
     Route: 048
     Dates: start: 20130207
  3. METOPROLOL [Concomitant]

REACTIONS (12)
  - Chills [Unknown]
  - Pain [Unknown]
  - Hair growth abnormal [Unknown]
  - Influenza like illness [Unknown]
  - Alopecia [Recovered/Resolved]
  - Nausea [Recovered/Resolved]
  - Headache [Unknown]
  - Abdominal pain [Recovered/Resolved]
  - Hypertension [Unknown]
  - Diarrhoea [Recovered/Resolved]
  - Hypoaesthesia [Unknown]
  - Paraesthesia [Unknown]
